FAERS Safety Report 18343324 (Version 1)
Quarter: 2020Q4

REPORT INFORMATION
  Report Type: Spontaneous
  Country: US (occurrence: US)
  Receive Date: 20201003
  Receipt Date: 20201003
  Transmission Date: 20210113
  Serious: No
  Sender: FDA-Public Use
  Company Number: None

PATIENT
  Age: 42 Year
  Sex: Male
  Weight: 103.5 kg

DRUGS (2)
  1. DESMOPRESSIN ACETATE NASAL SPRAY [Suspect]
     Active Substance: DESMOPRESSIN ACETATE
     Indication: DIABETES INSIPIDUS
     Dosage: ?          QUANTITY:50 SPRAY(S);OTHER ROUTE:NOSE?
     Dates: start: 20120101
  2. RABERPRAZOLE [Concomitant]
     Active Substance: RABEPRAZOLE

REACTIONS (3)
  - Product availability issue [None]
  - Hyponatraemia [None]
  - Recalled product administered [None]

NARRATIVE: CASE EVENT DATE: 20200727
